FAERS Safety Report 10086574 (Version 2)
Quarter: 2014Q2

REPORT INFORMATION
  Report Type: Spontaneous
  Country: US (occurrence: US)
  Receive Date: 20140418
  Receipt Date: 20140512
  Transmission Date: 20141212
  Serious: Yes (Other)
  Sender: FDA-Public Use
  Company Number: US-PFIZER INC-2014107565

PATIENT
  Age: 65 Year
  Sex: Female
  Weight: 86 kg

DRUGS (6)
  1. LYRICA [Suspect]
     Indication: BACK PAIN
     Dosage: 75 MG, 1X/DAY
     Route: 048
     Dates: start: 2009
  2. LYRICA [Suspect]
     Indication: PAIN IN EXTREMITY
  3. LYRICA [Suspect]
     Indication: MUSCLE SPASMS
  4. SOMA [Concomitant]
     Indication: MUSCLE RELAXANT THERAPY
     Dosage: UNK, AS NEEDED
  5. MELOXICAM [Concomitant]
     Indication: ARTHRITIS
     Dosage: 15 MG, 1X/DAY
  6. LEVOTHYROXINE [Concomitant]
     Indication: THYROID DISORDER
     Dosage: 100 UG, 1X/DAY

REACTIONS (4)
  - Back disorder [Unknown]
  - Spinal disorder [Unknown]
  - Pain [Unknown]
  - Drug ineffective [Unknown]
